FAERS Safety Report 6444205-7 (Version None)
Quarter: 2009Q4

REPORT INFORMATION
  Report Type: 
  Country: None (occurrence: None)
  Receive Date: 20091118
  Receipt Date: 20091110
  Transmission Date: 20100525
  Serious: Yes (Hospitalization, Other)
  Sender: FDA-Public Use
  Company Number: US-ASTRAZENECA-2006UW21210

PATIENT
  Age: 14495 Day
  Sex: Female
  Weight: 82.6 kg

DRUGS (15)
  1. SEROQUEL [Suspect]
     Indication: SCHIZOPHRENIA
     Route: 048
     Dates: start: 20051025
  2. SEROQUEL [Suspect]
     Indication: ANXIETY
     Route: 048
     Dates: start: 20051025
  3. EFFEXOR [Concomitant]
     Dates: start: 20050412
  4. METOPROLOL TARTRATE [Concomitant]
     Dates: start: 20050801
  5. METOPROLOL TARTRATE [Concomitant]
     Dates: start: 20050701
  6. LIPITOR [Concomitant]
     Dates: start: 20050412
  7. NORTRIPTYLINE [Concomitant]
     Dates: start: 20050801
  8. PAXIL [Concomitant]
     Dosage: 25 MG EVERY MORNING, 37.5 MG EVERY MORNING
     Dates: start: 20060221
  9. HYDROCHLOROTHIAZIDE [Concomitant]
     Dates: start: 20060221
  10. XANAX [Concomitant]
     Dates: start: 20050412
  11. ASPIRIN [Concomitant]
     Dates: start: 20060221
  12. GLUCOVANCE [Concomitant]
     Dates: start: 20060221
  13. NOVOLOG [Concomitant]
     Dosage: IN SLIDING SCALE
     Dates: start: 20060221
  14. TRICOR [Concomitant]
     Dates: start: 20060226
  15. VYTORIN [Concomitant]
     Dates: start: 20081014

REACTIONS (3)
  - DIABETIC KETOACIDOSIS [None]
  - INSULIN-REQUIRING TYPE 2 DIABETES MELLITUS [None]
  - NEUROPATHY PERIPHERAL [None]
